FAERS Safety Report 5245587-4 (Version None)
Quarter: 2007Q1

REPORT INFORMATION
  Report Type: 
  Country: None (occurrence: None)
  Receive Date: 20070223
  Receipt Date: 20070208
  Transmission Date: 20070707
  Serious: Yes (Other)
  Sender: FDA-Public Use
  Company Number: FR-PFIZER INC-2007011208

PATIENT
  Age: 14 Year
  Sex: Female

DRUGS (2)
  1. ZARONTIN SYRUP [Suspect]
     Route: 048
  2. DEPAKENE [Concomitant]
     Route: 048

REACTIONS (6)
  - ABDOMINAL PAIN UPPER [None]
  - ACNE [None]
  - DRY SKIN [None]
  - PETIT MAL EPILEPSY [None]
  - PRURITUS [None]
  - VOMITING [None]
